FAERS Safety Report 22124343 (Version 3)
Quarter: 2023Q2

REPORT INFORMATION
  Report Type: Spontaneous
  Country: CN (occurrence: CN)
  Receive Date: 20230322
  Receipt Date: 20230405
  Transmission Date: 20230721
  Serious: Yes (Life-Threatening, Other)
  Sender: FDA-Public Use
  Company Number: CN-PFIZER INC-PV202300050987

PATIENT
  Age: 41 Year
  Sex: Male
  Weight: 60 kg

DRUGS (12)
  1. FLUCONAZOLE [Interacting]
     Active Substance: FLUCONAZOLE
     Indication: Fungal infection
     Dosage: 400 MG, 1X/DAY
     Route: 042
  2. FLUCONAZOLE [Interacting]
     Active Substance: FLUCONAZOLE
     Indication: Candida infection
  3. DASATINIB [Interacting]
     Active Substance: DASATINIB
     Indication: Fungal infection
     Dosage: 100 MG
     Route: 048
  4. DASATINIB [Interacting]
     Active Substance: DASATINIB
     Indication: Candida infection
  5. MICAFUNGIN [Concomitant]
     Active Substance: MICAFUNGIN SODIUM
     Indication: Fungal infection
     Dosage: UNK
     Route: 042
  6. MICAFUNGIN [Concomitant]
     Active Substance: MICAFUNGIN SODIUM
     Indication: Candida infection
  7. CEFTAZIDIME [Concomitant]
     Active Substance: CEFTAZIDIME
     Indication: Fungal infection
     Dosage: UNK
     Route: 042
  8. CEFTAZIDIME [Concomitant]
     Active Substance: CEFTAZIDIME
     Indication: Candida infection
  9. ATROPINE [Concomitant]
     Active Substance: ATROPINE
     Indication: Heart rate increased
     Dosage: UNK
  10. SODIUM NITROPRUSSIDE [Concomitant]
     Active Substance: SODIUM NITROPRUSSIDE
     Indication: Blood pressure decreased
     Dosage: UNK
  11. POTASSIUM [Concomitant]
     Active Substance: POTASSIUM
     Dosage: UNK
     Route: 048
  12. POTASSIUM [Concomitant]
     Active Substance: POTASSIUM
     Dosage: UNK
     Route: 042

REACTIONS (3)
  - Drug interaction [Unknown]
  - Cardiac arrest [Recovered/Resolved]
  - Torsade de pointes [Unknown]
